FAERS Safety Report 7769850-8 (Version None)
Quarter: 2011Q3

REPORT INFORMATION
  Report Type: 
  Country: None (occurrence: None)
  Receive Date: 20110922
  Receipt Date: 20100805
  Transmission Date: 20111222
  Serious: Yes (Other)
  Sender: FDA-Public Use
  Company Number: US-ASTRAZENECA-2010SE31532

PATIENT
  Age: 49 Year
  Sex: Female
  Weight: 59 kg

DRUGS (11)
  1. SEROQUEL [Suspect]
     Route: 048
     Dates: start: 20100601
  2. SEROQUEL [Suspect]
     Route: 048
     Dates: start: 20100601
  3. SEROQUEL [Suspect]
     Route: 048
  4. PARNATE [Concomitant]
  5. SEROQUEL [Suspect]
     Indication: DEPRESSION
     Route: 048
     Dates: start: 20070101, end: 20100601
  6. SEROQUEL [Suspect]
     Indication: BIPOLAR DISORDER
     Route: 048
     Dates: start: 20070101, end: 20100601
  7. SEROQUEL [Suspect]
     Indication: MAJOR DEPRESSION
     Route: 048
     Dates: start: 20070101, end: 20100601
  8. SEROQUEL [Suspect]
     Route: 048
  9. LITHIUM CARBONATE [Concomitant]
  10. SEROQUEL [Suspect]
     Route: 048
     Dates: start: 20100601
  11. SEROQUEL [Suspect]
     Route: 048

REACTIONS (6)
  - SUICIDAL BEHAVIOUR [None]
  - SOMNOLENCE [None]
  - MALAISE [None]
  - FATIGUE [None]
  - SLEEP DISORDER [None]
  - ABNORMAL DREAMS [None]
